FAERS Safety Report 9392301 (Version 3)
Quarter: 2014Q1

REPORT INFORMATION
  Report Type: Spontaneous
  Country: JP (occurrence: JP)
  Receive Date: 20130710
  Receipt Date: 20140214
  Transmission Date: 20141002
  Serious: Yes (Death)
  Sender: FDA-Public Use
  Company Number: JP-009507513-1307JPN003226

PATIENT
  Sex: Male

DRUGS (3)
  1. JANUVIA TABLETS 50MG [Suspect]
     Dosage: 50 MG, QD
     Route: 048
  2. BASEN [Concomitant]
     Dosage: DAILY DOSE UNKNOWN
  3. ADRENAL [Concomitant]
     Indication: PEMPHIGOID
     Dosage: DAILY DOSE UNKNOWN

REACTIONS (2)
  - Pemphigoid [Fatal]
  - Asthma [Fatal]
